FAERS Safety Report 9721558 (Version 1)
Quarter: 2013Q4

REPORT INFORMATION
  Report Type: Report from Study
  Country: BR (occurrence: BR)
  Receive Date: 20131130
  Receipt Date: 20131130
  Transmission Date: 20140711
  Serious: Yes (Death, Other)
  Sender: FDA-Public Use
  Company Number: PHHY2013BR138174

PATIENT
  Sex: Female

DRUGS (3)
  1. DIOVAN HCT [Suspect]
     Indication: BLOOD PRESSURE ABNORMAL
     Dosage: 1 DF (160 VALS, UKN AMLO), QD
     Route: 048
     Dates: end: 20131118
  2. NAUSEDRON [Concomitant]
     Indication: VOMITING
     Dosage: UNK UKN, UNK
     Dates: end: 20131118
  3. NEUTROFER [Concomitant]
     Indication: ANAEMIA
     Dosage: UNK UKN, UNK
     Dates: end: 20131118

REACTIONS (6)
  - Hypertension [Fatal]
  - Peritoneal carcinoma metastatic [Fatal]
  - Pancreatic carcinoma [Fatal]
  - Cardio-respiratory arrest [Fatal]
  - Diabetes mellitus [Unknown]
  - Nausea [Unknown]
